FAERS Safety Report 21494494 (Version 1)
Quarter: 2022Q4

REPORT INFORMATION
  Report Type: Spontaneous
  Country: US (occurrence: US)
  Receive Date: 20221021
  Receipt Date: 20221021
  Transmission Date: 20230113
  Serious: Yes (Other)
  Sender: FDA-Public Use
  Company Number: US-BRACCO-2022US02970

PATIENT
  Age: 50 Year
  Sex: Male

DRUGS (4)
  1. MULTIHANCE [Suspect]
     Active Substance: GADOBENATE DIMEGLUMINE
     Indication: Magnetic resonance imaging head
     Dosage: 19 ML, SINGLE
     Route: 042
     Dates: start: 20220727, end: 20220727
  2. ASPIRIN [Concomitant]
     Active Substance: ASPIRIN
  3. ALBUTEROL SULFATE [Concomitant]
     Active Substance: ALBUTEROL SULFATE
  4. ATIVAN [Concomitant]
     Active Substance: LORAZEPAM
     Indication: Premedication
     Dosage: UNK
     Dates: start: 20220727, end: 20220727

REACTIONS (1)
  - Anaphylactic reaction [Unknown]

NARRATIVE: CASE EVENT DATE: 20220727
